FAERS Safety Report 20603091 (Version 1)
Quarter: 2022Q1

REPORT INFORMATION
  Report Type: Report from Study
  Country: US (occurrence: None)
  Receive Date: 20220316
  Receipt Date: 20220316
  Transmission Date: 20220423
  Serious: Yes (Hospitalization)
  Sender: FDA-Public Use
  Company Number: US-ROCHE-3044215

PATIENT
  Age: 86 Year
  Sex: Male
  Weight: 98.518 kg

DRUGS (3)
  1. TOCILIZUMAB [Suspect]
     Active Substance: TOCILIZUMAB
     Indication: Malignant melanoma
     Dosage: DATE OF LAST TREATMENT 30/NOV/2021
     Route: 042
     Dates: start: 20210928
  2. NIVOLUMAB [Suspect]
     Active Substance: NIVOLUMAB
     Indication: Malignant melanoma
     Dosage: DATE OF LAST TREATMENT 18/JAN/2922
     Route: 042
     Dates: start: 20210928
  3. IPILIMUMAB [Suspect]
     Active Substance: IPILIMUMAB
     Indication: Malignant melanoma
     Dosage: DATE OF LAST TREATMENT 21/DEC/2021
     Route: 042
     Dates: start: 20210928

REACTIONS (1)
  - Asthenia [Not Recovered/Not Resolved]

NARRATIVE: CASE EVENT DATE: 20220303
